FAERS Safety Report 15775889 (Version 1)
Quarter: 2018Q4

REPORT INFORMATION
  Report Type: Spontaneous
  Country: GB (occurrence: GB)
  Receive Date: 20181231
  Receipt Date: 20181231
  Transmission Date: 20190205
  Serious: Yes (Life-Threatening, Hospitalization, Other)
  Sender: FDA-Public Use
  Company Number: GB-TORRENT-00019860

PATIENT
  Age: 44 Year
  Sex: Male

DRUGS (7)
  1. CLOMETHIAZOLE [Concomitant]
     Active Substance: CLOMETHIAZOLE
     Indication: PRODUCT USED FOR UNKNOWN INDICATION
     Dosage: CLOMETHIOZOLE 384 MG OD
  2. ZOMORPH [Concomitant]
     Active Substance: MORPHINE SULFATE
     Indication: PRODUCT USED FOR UNKNOWN INDICATION
     Dosage: 20 MG BD
  3. VENLAFAXINE [Interacting]
     Active Substance: VENLAFAXINE HYDROCHLORIDE
     Indication: PRODUCT USED FOR UNKNOWN INDICATION
     Dosage: 300 MG OD
  4. QUETIAPINE. [Suspect]
     Active Substance: QUETIAPINE
     Indication: PRODUCT USED FOR UNKNOWN INDICATION
     Dosage: 150 MG FOR HIS EVENING DOSE AND THEN THE FOLLOWING DAY, HE TOOK 150 MG BD
  5. PREGABALIN. [Concomitant]
     Active Substance: PREGABALIN
     Indication: PRODUCT USED FOR UNKNOWN INDICATION
     Dosage: 300 MG BD
  6. PROCYCLIDINE [Concomitant]
     Active Substance: PROCYCLIDINE
     Indication: MYOCLONUS
     Dosage: 2.5 MG TDS
  7. DIAZEPAM. [Concomitant]
     Active Substance: DIAZEPAM
     Indication: PRODUCT USED FOR UNKNOWN INDICATION
     Dosage: 2 MG TDS

REACTIONS (2)
  - Drug interaction [Recovered/Resolved]
  - Serotonin syndrome [Recovered/Resolved]
